FAERS Safety Report 6465147-7 (Version None)
Quarter: 2009Q4

REPORT INFORMATION
  Report Type: 
  Country: None (occurrence: None)
  Receive Date: 20091201
  Receipt Date: 20090806
  Transmission Date: 20100525
  Serious: Yes (Hospitalization, Other)
  Sender: FDA-Public Use
  Company Number: US-PFIZER INC-2009251842

PATIENT
  Age: 80 Year
  Sex: Male

DRUGS (4)
  1. PHENYTOIN AND PHENYTOIN SODIUM [Suspect]
     Dosage: 200MG IN MORNING, 150MG IN EVENING
  2. SENNA [Concomitant]
  3. LEVOTHYROXINE [Concomitant]
  4. LEVETIRACETAM [Concomitant]
     Dosage: 500 MG, 2X/DAY

REACTIONS (5)
  - BLOOD ALBUMIN DECREASED [None]
  - CREATININE RENAL CLEARANCE DECREASED [None]
  - DRUG TOXICITY [None]
  - EATING DISORDER [None]
  - MENTAL STATUS CHANGES [None]
